FAERS Safety Report 19649056 (Version 1)
Quarter: 2021Q3

REPORT INFORMATION
  Report Type: Spontaneous
  Country: US (occurrence: US)
  Receive Date: 20210803
  Receipt Date: 20210803
  Transmission Date: 20211014
  Serious: Yes (Other)
  Sender: FDA-Public Use
  Company Number: US-LUPIN PHARMACEUTICALS INC.-2021-13459

PATIENT
  Age: 27 Year
  Sex: Female

DRUGS (3)
  1. NORETHINDRONE AND ETHINYL ESTRADIOL [Suspect]
     Active Substance: ETHINYL ESTRADIOL\NORETHINDRONE
     Indication: HAEMOPTYSIS
     Dosage: UNK (1.5MG/30MCG PILL?THREE?WEEK ROTATING CYCLE WITH A SKIPPED PLACEBO WEEK TO AVOID HER MENSTRUAL C
     Route: 048
  2. VITAMIN K [Concomitant]
     Active Substance: PHYTONADIONE
     Indication: HAEMOPTYSIS
     Dosage: 5 MILLIGRAM (THREE TIMES A WEEK)
     Route: 065
  3. VITAMIN K [Concomitant]
     Active Substance: PHYTONADIONE
     Dosage: 10 MILLIGRAM (THREE TIMES A WEEK)
     Route: 065

REACTIONS (1)
  - Pulmonary embolism [Recovered/Resolved]
